FAERS Safety Report 19461326 (Version 2)
Quarter: 2022Q2

REPORT INFORMATION
  Report Type: Spontaneous
  Country: BR (occurrence: BR)
  Receive Date: 20210625
  Receipt Date: 20220628
  Transmission Date: 20220721
  Serious: Yes (Other)
  Sender: FDA-Public Use
  Company Number: BR-GSKCCFAMERS-CASE-01090690_AE-64391

PATIENT

DRUGS (1)
  1. DUTASTERIDE\TAMSULOSIN [Suspect]
     Active Substance: DUTASTERIDE\TAMSULOSIN
     Indication: Prostatic disorder
     Dosage: UNK
     Route: 048

REACTIONS (8)
  - Choking [Recovered/Resolved]
  - Foreign body in throat [Unknown]
  - Pulmonary fibrosis [Unknown]
  - COVID-19 [Recovered/Resolved]
  - Dysphagia [Unknown]
  - Condition aggravated [Unknown]
  - Lung disorder [Unknown]
  - Wrong technique in product usage process [Unknown]

NARRATIVE: CASE EVENT DATE: 20210621
